FAERS Safety Report 10874623 (Version 1)
Quarter: 2015Q1

REPORT INFORMATION
  Report Type: Spontaneous
  Country: CA (occurrence: None)
  Receive Date: 20150223
  Receipt Date: 20150223
  Transmission Date: 20150721
  Serious: Yes (Hospitalization)
  Sender: FDA-Public Use
  Company Number: None

PATIENT
  Age: 45 Year
  Sex: Male

DRUGS (7)
  1. NAPROXEN. [Concomitant]
     Active Substance: NAPROXEN
  2. AMBIEN [Concomitant]
     Active Substance: ZOLPIDEM TARTRATE
  3. MULTIVITAMIN [Concomitant]
     Active Substance: VITAMINS
  4. LEVAQUIN [Suspect]
     Active Substance: LEVOFLOXACIN
     Indication: POST PROCEDURAL INFECTION
     Dosage: 1 PILL
     Route: 048
  5. LEVAQUIN [Suspect]
     Active Substance: LEVOFLOXACIN
     Indication: NOSOCOMIAL INFECTION
     Dosage: 1 PILL
     Route: 048
  6. PREVACID [Concomitant]
     Active Substance: LANSOPRAZOLE
  7. ANTACID [Concomitant]
     Active Substance: ALUMINUM HYDROXIDE\CALCIUM CARBONATE\DIMETHICONE\MAGNESIUM HYDROXIDE

REACTIONS (40)
  - Pain [None]
  - Mood swings [None]
  - Tremor [None]
  - Muscle twitching [None]
  - Bladder disorder [None]
  - Skin discolouration [None]
  - Transplant [None]
  - Confusional state [None]
  - Depression [None]
  - Rash [None]
  - Tic [None]
  - Mobility decreased [None]
  - Pulmonary oedema [None]
  - Thirst [None]
  - Dry mouth [None]
  - Thrombosis [None]
  - Vertigo [None]
  - Emotional disorder [None]
  - Quality of life decreased [None]
  - Peripheral swelling [None]
  - Chondropathy [None]
  - Alopecia [None]
  - Angiopathy [None]
  - Onychoclasis [None]
  - Dental caries [None]
  - Tendon rupture [None]
  - Anxiety [None]
  - Headache [None]
  - Balance disorder [None]
  - Dizziness [None]
  - Oxygen saturation decreased [None]
  - Amnesia [None]
  - Hypohidrosis [None]
  - Vitreous floaters [None]
  - Disturbance in attention [None]
  - Arthralgia [None]
  - Blood pressure fluctuation [None]
  - Feeling abnormal [None]
  - Respiratory distress [None]
  - Dysgeusia [None]

NARRATIVE: CASE EVENT DATE: 20070827
